FAERS Safety Report 7744302-X (Version None)
Quarter: 2011Q3

REPORT INFORMATION
  Report Type: 
  Country: None (occurrence: None)
  Receive Date: 20110912
  Receipt Date: 20110905
  Transmission Date: 20111222
  Serious: Yes (Other)
  Sender: FDA-Public Use
  Company Number: JP-B.I. PHARMACEUTICALS,INC./RIDGEFIELD-2011-BP-21482NB

PATIENT
  Age: 65 Year
  Sex: Female

DRUGS (8)
  1. PRADAXA [Suspect]
     Indication: ATRIAL FIBRILLATION
     Dosage: 220 MG
     Route: 048
     Dates: start: 20110806, end: 20110905
  2. GLYBURIDE [Concomitant]
     Indication: TYPE 2 DIABETES MELLITUS
     Route: 048
  3. LASIX [Concomitant]
     Indication: CARDIAC FAILURE
     Dosage: 20 MG
     Route: 048
  4. SPIRONOLACTONE [Concomitant]
     Indication: CARDIAC FAILURE
     Dosage: 25 MG
     Route: 048
  5. ASPIRIN [Concomitant]
     Dosage: 100 MG
     Route: 048
  6. JANUVIA [Concomitant]
     Indication: TYPE 2 DIABETES MELLITUS
     Dosage: 50 MG
     Route: 048
  7. AMARYL [Concomitant]
     Indication: TYPE 2 DIABETES MELLITUS
     Dosage: 1 MG
     Route: 048
  8. TICLOPIDINE HCL [Concomitant]
     Dosage: 100 MG
     Route: 048

REACTIONS (6)
  - ALANINE AMINOTRANSFERASE INCREASED [None]
  - HEPATIC FUNCTION ABNORMAL [None]
  - ATRIAL FIBRILLATION [None]
  - CARDIAC FAILURE [None]
  - BLOOD LACTATE DEHYDROGENASE INCREASED [None]
  - ASPARTATE AMINOTRANSFERASE INCREASED [None]
